FAERS Safety Report 4853223-1 (Version None)
Quarter: 2005Q4

REPORT INFORMATION
  Report Type: 
  Country: None (occurrence: None)
  Receive Date: 20051214
  Receipt Date: 20051108
  Transmission Date: 20060501
  Serious: Yes (Hospitalization)
  Sender: FDA-Public Use
  Company Number: FR-AVENTIS-200513687FR

PATIENT
  Age: 46 Year
  Sex: Male
  Weight: 59 kg

DRUGS (7)
  1. TAXOTERE [Suspect]
     Indication: LUNG ADENOCARCINOMA
     Route: 042
     Dates: start: 20050908, end: 20050908
  2. COMBIVIR [Suspect]
     Route: 048
     Dates: start: 19900101
  3. CRIXIVAN [Suspect]
     Route: 048
     Dates: start: 19900101
  4. NORVIR [Suspect]
     Route: 048
     Dates: start: 19900101
  5. TARDYFERON [Concomitant]
  6. NEORECORMON [Concomitant]
     Route: 058
     Dates: start: 20050909
  7. NEUPOGEN [Concomitant]
     Route: 058
     Dates: start: 20050909, end: 20050915

REACTIONS (6)
  - ERYTHEMA [None]
  - ONYCHOLYSIS [None]
  - ORAL FUNGAL INFECTION [None]
  - PYREXIA [None]
  - SKIN EXFOLIATION [None]
  - STOMATITIS [None]
